FAERS Safety Report 7003221-7 (Version None)
Quarter: 2010Q3

REPORT INFORMATION
  Report Type: 
  Country: None (occurrence: None)
  Receive Date: 20100920
  Receipt Date: 20100322
  Transmission Date: 20110219
  Serious: No
  Sender: FDA-Public Use
  Company Number: US-ASTRAZENECA-2007UW18868

PATIENT
  Age: 11471 Day
  Sex: Male
  Weight: 178.3 kg

DRUGS (27)
  1. SEROQUEL [Suspect]
     Indication: BIPOLAR DISORDER
     Route: 048
     Dates: start: 20021201, end: 20060801
  2. SEROQUEL [Suspect]
     Indication: ANXIETY
     Route: 048
     Dates: start: 20021201, end: 20060801
  3. SEROQUEL [Suspect]
     Indication: SLEEP DISORDER
     Route: 048
     Dates: start: 20021201, end: 20060801
  4. SEROQUEL [Suspect]
     Dosage: 50 - 1400 MG DAILY
     Route: 048
     Dates: start: 20021227
  5. SEROQUEL [Suspect]
     Dosage: 50 - 1400 MG DAILY
     Route: 048
     Dates: start: 20021227
  6. SEROQUEL [Suspect]
     Dosage: 50 - 1400 MG DAILY
     Route: 048
     Dates: start: 20021227
  7. SEROQUEL [Suspect]
     Route: 048
     Dates: start: 20040917
  8. SEROQUEL [Suspect]
     Route: 048
     Dates: start: 20040917
  9. SEROQUEL [Suspect]
     Route: 048
     Dates: start: 20040917
  10. SEROQUEL [Suspect]
     Route: 048
     Dates: start: 20050719
  11. SEROQUEL [Suspect]
     Route: 048
     Dates: start: 20050719
  12. SEROQUEL [Suspect]
     Route: 048
     Dates: start: 20050719
  13. TOPAMAX [Concomitant]
     Indication: WEIGHT CONTROL
     Route: 048
     Dates: start: 20030131
  14. DEPAKOTE [Concomitant]
     Dosage: 200 - 2000 MG DAILY
     Route: 048
     Dates: start: 20021227
  15. DEPAKOTE [Concomitant]
  16. KLONOPIN [Concomitant]
     Dosage: 2 - 30 MG DAILY
     Route: 048
     Dates: start: 20021227
  17. LISINOPRIL [Concomitant]
     Route: 048
     Dates: start: 20060123
  18. TOPROL-XL [Concomitant]
     Route: 048
     Dates: start: 20060123
  19. LIPITOR [Concomitant]
     Route: 048
     Dates: start: 20060123
  20. BENADRYL [Concomitant]
     Indication: SLEEP DISORDER
     Dates: start: 20021227
  21. NICOTINE [Concomitant]
     Indication: WITHDRAWAL SYNDROME
     Route: 062
     Dates: start: 20021227
  22. ZOLOFT [Concomitant]
     Dates: start: 20010101
  23. METFORMIN [Concomitant]
     Dates: start: 20050719
  24. GLIPIZIDE [Concomitant]
     Dates: start: 20050719
  25. LOVASTATIN [Concomitant]
     Dates: start: 20050719
  26. LITHIUM CARBONATE [Concomitant]
     Dates: start: 20050719
  27. LAMICTAL [Concomitant]
     Dates: start: 20050719

REACTIONS (6)
  - DIABETES MELLITUS [None]
  - INSULIN-REQUIRING TYPE 2 DIABETES MELLITUS [None]
  - OBESITY [None]
  - TYPE 1 DIABETES MELLITUS [None]
  - TYPE 2 DIABETES MELLITUS [None]
  - WEIGHT INCREASED [None]
